FAERS Safety Report 10695757 (Version 1)
Quarter: 2015Q1

REPORT INFORMATION
  Report Type: Spontaneous
  Country: US (occurrence: US)
  Receive Date: 20150107
  Receipt Date: 20150107
  Transmission Date: 20150721
  Serious: No
  Sender: FDA-Public Use
  Company Number: US-ELI_LILLY_AND_COMPANY-US201412007326

PATIENT
  Sex: Female

DRUGS (2)
  1. FORTEO [Suspect]
     Active Substance: TERIPARATIDE
     Dosage: UNK UNK, QD
     Route: 065
     Dates: start: 20141215
  2. FORTEO [Suspect]
     Active Substance: TERIPARATIDE
     Indication: OSTEOPOROSIS
     Dosage: DUNK
     Route: 065
     Dates: start: 201409

REACTIONS (5)
  - Drug dose omission [Unknown]
  - Agitation [Unknown]
  - Incorrect product storage [Unknown]
  - Anxiety [Unknown]
  - Dementia [Unknown]

NARRATIVE: CASE EVENT DATE: 201411
